FAERS Safety Report 6428017-6 (Version None)
Quarter: 2009Q4

REPORT INFORMATION
  Report Type: 
  Country: None (occurrence: None)
  Receive Date: 20091105
  Receipt Date: 20091026
  Transmission Date: 20100525
  Serious: Yes (Other)
  Sender: FDA-Public Use
  Company Number: TR-ROCHE-664749

PATIENT
  Age: 29 Year
  Sex: Male

DRUGS (1)
  1. ISOTRETINOIN [Suspect]
     Dosage: RECEIVED A FULL COURSE; CUMULATIVE DOSAGE; 120 MG/KG
     Route: 065

REACTIONS (1)
  - BONE DISORDER [None]
